FAERS Safety Report 8453796-6 (Version None)
Quarter: 2012Q2

REPORT INFORMATION
  Report Type: 
  Country: None (occurrence: None)
  Receive Date: 20120620
  Receipt Date: 20120615
  Transmission Date: 20120825
  Serious: Yes (Death, Life-Threatening, Hospitalization, Other)
  Sender: FDA-Public Use
  Company Number: FR-ELI_LILLY_AND_COMPANY-FR201206004961

PATIENT
  Sex: Male

DRUGS (9)
  1. CANDESARTAN CILEXETIL [Concomitant]
  2. OXYCONTIN [Concomitant]
  3. ATENOLOL [Concomitant]
  4. CARBOPLATIN [Concomitant]
     Dosage: 1.1 G, UNK
     Dates: start: 20110705, end: 20110705
  5. ADALAT [Concomitant]
  6. ALIMTA [Suspect]
     Dosage: 875 MG, UNK
     Route: 042
     Dates: start: 20110705, end: 20110705
  7. LOVENOX [Concomitant]
  8. PROZAC [Concomitant]
  9. FENOFIBRATE [Concomitant]

REACTIONS (9)
  - ARRHYTHMIA [None]
  - HYPONATRAEMIA [None]
  - DEHYDRATION [None]
  - HYPOKALAEMIA [None]
  - MALNUTRITION [None]
  - MULTI-ORGAN FAILURE [None]
  - GENERAL PHYSICAL HEALTH DETERIORATION [None]
  - COLITIS [None]
  - VENOUS THROMBOSIS [None]
